FAERS Safety Report 8792281 (Version 3)
Quarter: 2015Q3

REPORT INFORMATION
  Report Type: Report from Study
  Country: US (occurrence: US)
  Receive Date: 20120918
  Receipt Date: 20150804
  Transmission Date: 20151125
  Serious: Yes (Death)
  Sender: FDA-Public Use
  Company Number: US-ROCHE-1125701

PATIENT
  Sex: Male
  Weight: 60 kg

DRUGS (18)
  1. BENADRYL [Concomitant]
     Active Substance: DIPHENHYDRAMINE HYDROCHLORIDE
     Route: 048
  2. 5-FLUOROURACIL [Concomitant]
     Active Substance: FLUOROURACIL
     Route: 042
  3. AVASTIN [Suspect]
     Active Substance: BEVACIZUMAB
     Indication: RECTOSIGMOID CANCER
     Route: 042
  4. DECADRON [Concomitant]
     Active Substance: DEXAMETHASONE
     Route: 042
  5. XELODA [Concomitant]
     Active Substance: CAPECITABINE
     Route: 065
  6. COPEGUS [Concomitant]
     Active Substance: RIBAVIRIN
     Route: 065
  7. FOLINIC ACID [Concomitant]
     Active Substance: LEUCOVORIN
  8. OXALIPLATIN. [Concomitant]
     Active Substance: OXALIPLATIN
     Route: 042
  9. AVASTIN [Suspect]
     Active Substance: BEVACIZUMAB
     Route: 042
  10. KYTRIL [Concomitant]
     Active Substance: GRANISETRON HYDROCHLORIDE
     Route: 042
  11. AVASTIN [Suspect]
     Active Substance: BEVACIZUMAB
     Route: 042
  12. PROCRIT [Concomitant]
     Active Substance: ERYTHROPOIETIN
  13. AVASTIN [Suspect]
     Active Substance: BEVACIZUMAB
     Route: 042
  14. DECADRON [Concomitant]
     Active Substance: DEXAMETHASONE
     Route: 065
  15. TYLENOL #1 (UNITED STATES) [Concomitant]
     Route: 048
  16. AVASTIN [Suspect]
     Active Substance: BEVACIZUMAB
     Indication: COLORECTAL CANCER
     Route: 042
  17. LEUCOVORIN. [Concomitant]
     Active Substance: LEUCOVORIN
     Dosage: 400 G/M2
     Route: 065
  18. IRINOTECAN [Concomitant]
     Active Substance: IRINOTECAN

REACTIONS (8)
  - Abdominal lymphadenopathy [Unknown]
  - Cough [Unknown]
  - Lymphadenopathy [Unknown]
  - Retroperitoneal lymphadenopathy [Unknown]
  - Weight increased [Unknown]
  - Pain [Unknown]
  - Disease progression [Fatal]
  - Hepatic cyst [Unknown]
